FAERS Safety Report 5725904-9 (Version None)
Quarter: 2008Q2

REPORT INFORMATION
  Report Type: 
  Country: None (occurrence: None)
  Receive Date: 20080502
  Receipt Date: 20080422
  Transmission Date: 20081010
  Serious: Yes (Hospitalization)
  Sender: FDA-Public Use
  Company Number: US-BAYER-200814539NA

PATIENT
  Age: 58 Year
  Sex: Female

DRUGS (5)
  1. BETASERON [Suspect]
     Indication: MULTIPLE SCLEROSIS
     Route: 065
     Dates: start: 19960101, end: 20071221
  2. DETROL [Concomitant]
  3. FOSAMAX [Concomitant]
  4. SYNTHROID [Concomitant]
     Route: 065
  5. COPAXONE [Concomitant]

REACTIONS (4)
  - INJECTION SITE CELLULITIS [None]
  - INJECTION SITE DISCOMFORT [None]
  - INJECTION SITE ERYTHEMA [None]
  - INJECTION SITE SWELLING [None]
